FAERS Safety Report 8348769-8 (Version None)
Quarter: 2012Q2

REPORT INFORMATION
  Report Type: 
  Country: None (occurrence: None)
  Receive Date: 20120510
  Receipt Date: 20120507
  Transmission Date: 20120825
  Serious: No
  Sender: FDA-Public Use
  Company Number: US-PFIZER INC-2012111382

PATIENT
  Sex: Male
  Weight: 73 kg

DRUGS (5)
  1. FENTANYL-100 [Concomitant]
     Dosage: UNK
  2. NEURONTIN [Suspect]
     Indication: NEUROPATHY PERIPHERAL
  3. NEURONTIN [Suspect]
     Indication: SPINE MALFORMATION
  4. NEURONTIN [Suspect]
     Indication: FIBROMYALGIA
  5. NEURONTIN [Suspect]
     Indication: FOOT AMPUTATION
     Dosage: 300 MG, 4X/DAY
     Route: 048
     Dates: end: 20120401

REACTIONS (2)
  - MALAISE [None]
  - PAIN [None]
